FAERS Safety Report 8580853-6 (Version None)
Quarter: 2012Q3

REPORT INFORMATION
  Report Type: 
  Country: None (occurrence: None)
  Receive Date: 20120726
  Receipt Date: 20120702
  Transmission Date: 20120928
  Serious: Yes (Other)
  Sender: FDA-Public Use
  Company Number: 1344827

PATIENT
  Age: 5 Day
  Sex: Male
  Weight: 3 kg

DRUGS (2)
  1. MIDAZOLAM [Concomitant]
  2. PRECEDEX [Suspect]
     Indication: SEDATION
     Dosage: INTRAVENOUS DRIP
     Route: 041

REACTIONS (2)
  - EPILEPSY [None]
  - DYSKINESIA [None]
